FAERS Safety Report 7535888-9 (Version None)
Quarter: 2011Q2

REPORT INFORMATION
  Report Type: 
  Country: None (occurrence: None)
  Receive Date: 20110602
  Receipt Date: 20110521
  Transmission Date: 20111010
  Serious: Yes (Hospitalization, Other)
  Sender: FDA-Public Use
  Company Number: 2011AP001045

PATIENT
  Age: 83 Year
  Sex: Male

DRUGS (1)
  1. AMIODARONE HYDROCHLORIDE [Suspect]
     Indication: ATRIAL FIBRILLATION

REACTIONS (9)
  - BLOOD CREATININE INCREASED [None]
  - HALLUCINATION, VISUAL [None]
  - SINUS BRADYCARDIA [None]
  - CEREBRAL ISCHAEMIA [None]
  - HYPOTHYROIDISM [None]
  - HAEMOGLOBIN DECREASED [None]
  - OEDEMA PERIPHERAL [None]
  - PERIORBITAL OEDEMA [None]
  - ATRIOVENTRICULAR BLOCK FIRST DEGREE [None]
